FAERS Safety Report 23456798 (Version 2)
Quarter: 2024Q1

REPORT INFORMATION
  Report Type: Spontaneous
  Country: US (occurrence: US)
  Receive Date: 20240130
  Receipt Date: 20240212
  Transmission Date: 20240410
  Serious: Yes (Other)
  Sender: FDA-Public Use
  Company Number: US-BAYER-2024A012906

PATIENT
  Age: 35 Year
  Sex: Male

DRUGS (4)
  1. KOVALTRY [Suspect]
     Active Substance: ANTIHEMOPHILIC FACTOR, HUMAN RECOMBINANT
     Dosage: 500 UNITS/5000 UNITS, PRN
  2. KOVALTRY [Suspect]
     Active Substance: ANTIHEMOPHILIC FACTOR, HUMAN RECOMBINANT
     Dosage: INFUSED A MAJOR DOSE
     Dates: start: 20240117, end: 20240117
  3. KOVALTRY [Suspect]
     Active Substance: ANTIHEMOPHILIC FACTOR, HUMAN RECOMBINANT
     Dosage: INFUSED MINOR DOSES
     Dates: start: 20240117, end: 20240117
  4. KOVALTRY [Suspect]
     Active Substance: ANTIHEMOPHILIC FACTOR, HUMAN RECOMBINANT
     Dosage: INFUSED MINOR DOSES
     Dates: start: 20240118, end: 20240118

REACTIONS (3)
  - Haemorrhage [None]
  - Haemorrhage [None]
  - Upper limb fracture [None]

NARRATIVE: CASE EVENT DATE: 20240115
